FAERS Safety Report 17688478 (Version 1)
Quarter: 2020Q2

REPORT INFORMATION
  Report Type: Spontaneous
  Country: FR (occurrence: FR)
  Receive Date: 20200421
  Receipt Date: 20200421
  Transmission Date: 20200714
  Serious: Yes (Hospitalization)
  Sender: FDA-Public Use
  Company Number: FR-ELI_LILLY_AND_COMPANY-FR202004006327

PATIENT
  Age: 74 Year
  Sex: Male
  Weight: 58 kg

DRUGS (17)
  1. MOVICOL [MACROGOL 4000;POTASSIUM CHLORIDE;SOD [Concomitant]
  2. KEYTRUDA [Suspect]
     Active Substance: PEMBROLIZUMAB
     Indication: LUNG ADENOCARCINOMA
     Dosage: 200 MG, CYCLICAL
     Route: 041
     Dates: start: 20191227, end: 20191227
  3. MOVENTIG [Concomitant]
     Active Substance: NALOXEGOL OXALATE
  4. LANSOPRAZOLE. [Concomitant]
     Active Substance: LANSOPRAZOLE
  5. ALPRAZOLAM. [Concomitant]
     Active Substance: ALPRAZOLAM
  6. ERYTHROMYCINE GNR [Concomitant]
  7. GAVISCON [ALGINIC ACID;ALUMINIUM HYDROXIDE GE [Concomitant]
  8. ANTALNOX [Concomitant]
     Active Substance: NAPROXEN SODIUM
  9. ESCITALOPRAM [Concomitant]
     Active Substance: ESCITALOPRAM OXALATE
  10. BACTRIM [Concomitant]
     Active Substance: SULFAMETHOXAZOLE\TRIMETHOPRIM
  11. VERSATIS [Concomitant]
     Active Substance: LIDOCAINE
  12. HYDROCORTISONE. [Concomitant]
     Active Substance: HYDROCORTISONE
  13. ALIMTA [Suspect]
     Active Substance: PEMETREXED DISODIUM
     Indication: LUNG ADENOCARCINOMA
     Dosage: 835 MG, CYCLICAL
     Route: 041
     Dates: start: 20191227, end: 20191227
  14. OXYCODONE [Concomitant]
     Active Substance: OXYCODONE
  15. CARBOPLATIN ACCORD [Suspect]
     Active Substance: CARBOPLATIN
     Indication: LUNG ADENOCARCINOMA
     Dosage: 470 MG, CYCLICAL
     Route: 041
     Dates: start: 20191227, end: 20191227
  16. LOVENOX [LEVOFLOXACIN] [Concomitant]
     Active Substance: LEVOFLOXACIN
  17. OXYNORM [Concomitant]
     Active Substance: OXYCODONE HYDROCHLORIDE

REACTIONS (3)
  - Colitis microscopic [Recovering/Resolving]
  - Diarrhoea [Recovering/Resolving]
  - Off label use [Unknown]

NARRATIVE: CASE EVENT DATE: 202001
